FAERS Safety Report 24737086 (Version 1)
Quarter: 2024Q4

REPORT INFORMATION
  Report Type: Other
  Country: AU (occurrence: AU)
  Receive Date: 20241216
  Receipt Date: 20241216
  Transmission Date: 20250115
  Serious: Yes (Hospitalization, Other)
  Sender: ANI
  Company Number: AU-ANIPHARMA-014038

PATIENT
  Age: 4 Year
  Sex: Male

DRUGS (11)
  1. CYCLOPHOSPHAMIDE [Suspect]
     Active Substance: CYCLOPHOSPHAMIDE
     Indication: Bone marrow conditioning regimen
  2. PREDNISOLONE [Concomitant]
     Active Substance: PREDNISOLONE
     Indication: Thalassaemia beta
  3. IMMUNE GLOBULIN [Concomitant]
     Indication: Thalassaemia beta
  4. RITUXIMAB [Concomitant]
     Active Substance: RITUXIMAB
     Indication: Thalassaemia beta
  5. HYDROXYUREA [Concomitant]
     Active Substance: HYDROXYUREA
     Indication: Bone marrow conditioning regimen
  6. AZATHIOPRINE [Concomitant]
     Active Substance: AZATHIOPRINE
     Indication: Bone marrow conditioning regimen
  7. BUSULFAN [Concomitant]
     Active Substance: BUSULFAN
     Indication: Bone marrow conditioning regimen
  8. FLUDARABINE [Concomitant]
     Active Substance: FLUDARABINE PHOSPHATE
     Indication: Bone marrow conditioning regimen
  9. THIOTEPA [Concomitant]
     Active Substance: THIOTEPA
     Indication: Bone marrow conditioning regimen
  10. THYMOCYTE IMMUNE GLOBULIN NOS [Concomitant]
     Active Substance: THYMOCYTE IMMUNE GLOBULIN NOS
     Indication: Bone marrow conditioning regimen
  11. IRON [Concomitant]
     Active Substance: IRON
     Indication: Intravascular haemolysis

REACTIONS (3)
  - Multiple organ dysfunction syndrome [Recovered/Resolved]
  - Off label use [Unknown]
  - Venoocclusive disease [Unknown]
